FAERS Safety Report 15196317 (Version 1)
Quarter: 2018Q3

REPORT INFORMATION
  Report Type: Spontaneous
  Country: FR (occurrence: FR)
  Receive Date: 20180725
  Receipt Date: 20180725
  Transmission Date: 20181010
  Serious: Yes (Hospitalization)
  Sender: FDA-Public Use
  Company Number: FR-PFIZER INC-2018292620

PATIENT
  Age: 59 Year
  Sex: Female
  Weight: 94 kg

DRUGS (9)
  1. THERALENE [Suspect]
     Active Substance: TRIMEPRAZINE
     Indication: ANXIETY
     Dosage: 3 TABLETS, 1X/DAY
     Route: 048
  2. IMOVANE [Suspect]
     Active Substance: ZOPICLONE
     Indication: ANXIETY
     Dosage: 1 TABLET, 1X/DAY
     Route: 048
  3. LIPANTHYL [Concomitant]
     Active Substance: FENOFIBRATE
     Dosage: 1 CAPSULE, 1X/DAY
     Route: 048
  4. MONOPROST [Concomitant]
     Active Substance: LATANOPROST
     Dosage: 1 GTT, 1X/DAY
     Route: 047
  5. IMPORTAL [Concomitant]
     Active Substance: LACTITOL
     Dosage: 2 SACHETS, 1X/DAY
     Route: 048
  6. XANAX [Suspect]
     Active Substance: ALPRAZOLAM
     Indication: ANXIETY
     Dosage: 3 TABLETS, 1X/DAY
     Route: 048
  7. DEPAKOTE [Suspect]
     Active Substance: DIVALPROEX SODIUM
     Dosage: 2 TABLETS, 1X/DAY
     Route: 048
  8. DEROXAT [Suspect]
     Active Substance: PAROXETINE HYDROCHLORIDE
     Indication: ANXIETY
     Dosage: UNK
     Route: 048
  9. BROMAZEPAM  ARROW [Suspect]
     Active Substance: BROMAZEPAM
     Indication: ANXIETY
     Dosage: 0.75 TABLET, 1X/DAY
     Route: 048
     Dates: end: 20171030

REACTIONS (3)
  - Dizziness [Recovered/Resolved]
  - Malaise [Recovered/Resolved]
  - Fall [Recovered/Resolved]

NARRATIVE: CASE EVENT DATE: 20171029
